FAERS Safety Report 13577069 (Version 1)
Quarter: 2017Q2

REPORT INFORMATION
  Report Type: Spontaneous
  Country: US (occurrence: US)
  Receive Date: 20170524
  Receipt Date: 20170524
  Transmission Date: 20170830
  Serious: No
  Sender: FDA-Public Use
  Company Number: US-PFIZER INC-2017224197

PATIENT
  Age: 10 Year
  Sex: Male

DRUGS (4)
  1. GENOTROPIN [Suspect]
     Active Substance: SOMATROPIN
     Indication: GROWTH HORMONE DEFICIENCY
     Dosage: 1.6 MG, DAILY
     Dates: end: 201704
  2. GENOTROPIN [Suspect]
     Active Substance: SOMATROPIN
     Dosage: 2 UNK, UNK
  3. SYNTHROID [Concomitant]
     Active Substance: LEVOTHYROXINE SODIUM
     Dosage: 100 MG, 1X/DAY
  4. HYDROCORTISONE. [Concomitant]
     Active Substance: HYDROCORTISONE
     Dosage: 3 ML, 3X/DAY

REACTIONS (7)
  - Oropharyngeal pain [Recovered/Resolved]
  - Asthenia [Unknown]
  - Weight decreased [Unknown]
  - Malaise [Unknown]
  - Decreased appetite [Unknown]
  - Dizziness [Unknown]
  - Underdose [Unknown]
